FAERS Safety Report 8758126 (Version 3)
Quarter: 2013Q4

REPORT INFORMATION
  Report Type: Spontaneous
  Country: US (occurrence: US)
  Receive Date: 20120828
  Receipt Date: 20131101
  Transmission Date: 20140711
  Serious: No
  Sender: FDA-Public Use
  Company Number: US-009507513-1208USA009922

PATIENT
  Age: 49 Year
  Sex: Female
  Weight: 59.86 kg

DRUGS (4)
  1. ZEGERID OTC CAPSULES [Suspect]
     Indication: ERUCTATION
     Dosage: 20 MG, QD
     Route: 048
     Dates: start: 20120728, end: 20120810
  2. ZEGERID OTC CAPSULES [Suspect]
     Indication: FLATULENCE
  3. ZEGERID OTC CAPSULES [Suspect]
     Indication: MEDICAL OBSERVATION
  4. VITAMINS (UNSPECIFIED) [Concomitant]
     Dosage: UNK, UNKNOWN

REACTIONS (3)
  - Back pain [Recovered/Resolved]
  - Nervousness [Recovered/Resolved]
  - Feeling jittery [Recovered/Resolved]
